FAERS Safety Report 4993208-8 (Version None)
Quarter: 2006Q1

REPORT INFORMATION
  Report Type: 
  Country: None (occurrence: None)
  Receive Date: 20060313
  Receipt Date: 20051128
  Transmission Date: 20060701
  Serious: No
  Sender: FDA-Public Use
  Company Number: 2005-BP-19743BP

PATIENT
  Sex: Female

DRUGS (6)
  1. SPIRIVA [Suspect]
     Indication: CHRONIC OBSTRUCTIVE PULMONARY DISEASE
     Dosage: 18 MCG (18 MCG),IH
     Dates: start: 20040901
  2. SPIRIVA [Suspect]
     Indication: EMPHYSEMA
     Dosage: 18 MCG (18 MCG),IH
     Dates: start: 20040901
  3. ADVAIR (SERETIDE) [Concomitant]
  4. CARDIZEM [Concomitant]
  5. ACTONEL [Concomitant]
  6. MULTIVITAMIN [Concomitant]

REACTIONS (3)
  - DYSPNOEA EXACERBATED [None]
  - EXERCISE TOLERANCE DECREASED [None]
  - SENSORY LOSS [None]
